FAERS Safety Report 6240419-X (Version None)
Quarter: 2009Q2

REPORT INFORMATION
  Report Type: 
  Country: None (occurrence: None)
  Receive Date: 20090619
  Receipt Date: 20090605
  Transmission Date: 20091009
  Serious: Yes (Hospitalization)
  Sender: FDA-Public Use
  Company Number: ALK_00876_2009

PATIENT
  Age: 25 Year
  Sex: Male
  Weight: 68.0396 kg

DRUGS (3)
  1. VIVITROL [Suspect]
     Indication: ALCOHOLISM
     Dosage: (INTRAMUSCULAR)
     Route: 030
     Dates: start: 20090508
  2. PAXIL [Concomitant]
  3. BUSPAR [Concomitant]

REACTIONS (1)
  - PANCREATITIS [None]
